FAERS Safety Report 10348123 (Version 13)
Quarter: 2015Q1

REPORT INFORMATION
  Report Type: Report from Study
  Country: US (occurrence: US)
  Receive Date: 20140729
  Receipt Date: 20150224
  Transmission Date: 20150720
  Serious: Yes (Hospitalization, Other)
  Sender: FDA-Public Use
  Company Number: US-GLAXOSMITHKLINE-B1017901A

PATIENT
  Age: 65 Year
  Sex: Female
  Weight: 52 kg

DRUGS (6)
  1. BUPROPION [Suspect]
     Active Substance: BUPROPION
     Indication: EX-TOBACCO USER
     Dosage: 21 MG, QD
     Route: 062
     Dates: start: 20140521, end: 20140709
  2. VARENICILINE [Suspect]
     Active Substance: VARENICLINE
     Indication: EX-TOBACCO USER
     Dosage: 21 MG, QD
     Route: 062
     Dates: start: 20140521, end: 20140709
  3. NICOTINE. [Suspect]
     Active Substance: NICOTINE
     Indication: EX-TOBACCO USER
     Dosage: 21 MG, QD
     Route: 062
     Dates: start: 20140529, end: 20140709
  4. PLACEBO [Suspect]
     Active Substance: UNSPECIFIED INGREDIENT
     Indication: EX-TOBACCO USER
     Dosage: 21 MG, QD
     Route: 048
     Dates: start: 20140521, end: 20140709
  5. LOTREL [Concomitant]
     Active Substance: AMLODIPINE BESYLATE\BENAZEPRIL HYDROCHLORIDE
     Dates: start: 2010
  6. PREMARIN [Concomitant]
     Active Substance: ESTROGENS, CONJUGATED
     Dates: start: 1979

REACTIONS (1)
  - Pancreatitis [Recovered/Resolved]

NARRATIVE: CASE EVENT DATE: 20140709
